FAERS Safety Report 6685220-8 (Version None)
Quarter: 2010Q2

REPORT INFORMATION
  Report Type: 
  Country: None (occurrence: None)
  Receive Date: 20100416
  Receipt Date: 20100405
  Transmission Date: 20101027
  Serious: Yes (Hospitalization)
  Sender: FDA-Public Use
  Company Number: US-ELI_LILLY_AND_COMPANY-US201004001534

PATIENT
  Age: 51 Year
  Sex: Female

DRUGS (6)
  1. ZYPREXA [Suspect]
     Indication: BIPOLAR I DISORDER
     Dosage: 15 MG, DAILY (1/D)
  2. ZYPREXA [Suspect]
     Dosage: 20 MG, 2/D
  3. ZYPREXA [Suspect]
     Dosage: 5 MG, DAILY (1/D)
  4. ZYPREXA [Suspect]
     Dosage: 20 MG, 3/D
  5. LAMICTAL [Concomitant]
  6. MEVACOR [Concomitant]

REACTIONS (2)
  - HALLUCINATION [None]
  - OVERDOSE [None]
